FAERS Safety Report 11088868 (Version 1)
Quarter: 2015Q2

REPORT INFORMATION
  Report Type: Spontaneous
  Country: US (occurrence: US)
  Receive Date: 20150504
  Receipt Date: 20150504
  Transmission Date: 20150821
  Serious: Yes (Hospitalization)
  Sender: FDA-Public Use
  Company Number: US-ENDO PHARMACEUTICALS INC.-201409204

PATIENT
  Age: 56 Year
  Sex: Male
  Weight: 89.2 kg

DRUGS (2)
  1. ANDROGEL [Suspect]
     Active Substance: TESTOSTERONE
     Indication: BLOOD TESTOSTERONE DECREASED
     Route: 061
  2. TESTIM [Suspect]
     Active Substance: TESTOSTERONE
     Indication: BLOOD TESTOSTERONE DECREASED
     Route: 062

REACTIONS (19)
  - Loss of consciousness [Unknown]
  - Crying [Unknown]
  - Treatment noncompliance [Unknown]
  - Depression [Unknown]
  - Memory impairment [Unknown]
  - Anger [Unknown]
  - Cerebrovascular accident [Unknown]
  - Anxiety [Unknown]
  - Balance disorder [Unknown]
  - Weight decreased [Unknown]
  - Decreased appetite [Unknown]
  - Syncope [Unknown]
  - Myocardial infarction [Unknown]
  - Asthenia [Unknown]
  - Thrombophlebitis [Recovered/Resolved]
  - Tinnitus [Unknown]
  - Cognitive disorder [Unknown]
  - Fall [Unknown]
  - Insomnia [Unknown]

NARRATIVE: CASE EVENT DATE: 20090813
